FAERS Safety Report 9820535 (Version 2)
Quarter: 2014Q1

REPORT INFORMATION
  Report Type: Spontaneous
  Country: DE (occurrence: DE)
  Receive Date: 20140116
  Receipt Date: 20140121
  Transmission Date: 20141002
  Serious: Yes (Other)
  Sender: FDA-Public Use
  Company Number: DE-PFIZER INC-2014009362

PATIENT
  Age: 74 Year
  Sex: Female

DRUGS (1)
  1. LATANOPROST [Suspect]
     Dosage: ONE APPLICATION IN THE EVENING
     Dates: start: 20140106

REACTIONS (5)
  - Eye swelling [Unknown]
  - Ocular hyperaemia [Unknown]
  - Lacrimation increased [Unknown]
  - Eyelid oedema [Unknown]
  - Eye pruritus [Unknown]
